FAERS Safety Report 16821910 (Version 2)
Quarter: 2019Q4

REPORT INFORMATION
  Report Type: Report from Study
  Country: None (occurrence: US)
  Receive Date: 20190918
  Receipt Date: 20191024
  Transmission Date: 20200122
  Serious: Yes (Other)
  Sender: FDA-Public Use
  Company Number: US-ABBVIE-19K-163-2928597-00

PATIENT
  Sex: Male
  Weight: 81.72 kg

DRUGS (11)
  1. HUMIRA [Suspect]
     Active Substance: ADALIMUMAB
     Indication: CHORIORETINITIS
     Route: 058
     Dates: start: 20180822
  2. KLONOPIN [Concomitant]
     Active Substance: CLONAZEPAM
     Indication: ANXIETY
     Dosage: QUANTITY 30 TABLETS
     Route: 048
  3. FLUDROCORTISONE ACETATE. [Concomitant]
     Active Substance: FLUDROCORTISONE ACETATE
     Indication: PRODUCT USED FOR UNKNOWN INDICATION
     Route: 048
  4. COUMADIN [Concomitant]
     Active Substance: WARFARIN SODIUM
     Indication: PRODUCT USED FOR UNKNOWN INDICATION
     Dosage: QUANTITY 30 TABLETS
  5. DELTASONE [Concomitant]
     Active Substance: PREDNISONE
     Indication: PRODUCT USED FOR UNKNOWN INDICATION
     Dosage: QUANTITY 180 TABLETS
  6. ROXICODONE [Concomitant]
     Active Substance: OXYCODONE HYDROCHLORIDE
     Indication: PAIN
     Dosage: TAKE 1-2 TABLETS AS NEEDED?QUANTITY SO TABLETS
     Route: 048
  7. SYNTHROID [Concomitant]
     Active Substance: LEVOTHYROXINE SODIUM
     Indication: PRODUCT USED FOR UNKNOWN INDICATION
     Dosage: 1 TABLET EVERY MORNING BEFORE BREAKFAST?QUANTITY 90 TABLETS
     Route: 048
  8. COSOPT [Concomitant]
     Active Substance: DORZOLAMIDE HYDROCHLORIDE\TIMOLOL MALEATE
     Indication: PRODUCT USED FOR UNKNOWN INDICATION
     Dosage: TIMOLOL MALEATE 2.23-0.68?/O OPHTHALMIC SOLUTION?1 DROP 2 TIMES DAILY.
  9. ZYLOPRIM [Concomitant]
     Active Substance: ALLOPURINOL
     Indication: PRODUCT USED FOR UNKNOWN INDICATION
     Route: 048
  10. NEURONTIN [Concomitant]
     Active Substance: GABAPENTIN
     Indication: PRODUCT USED FOR UNKNOWN INDICATION
     Dosage: 1-2 CAPSULES NIGHTLY AS NEEDED?QUANTITY 180CAPSULES
     Route: 048
  11. LUMIGAN [Concomitant]
     Active Substance: BIMATOPROST
     Indication: PRODUCT USED FOR UNKNOWN INDICATION
     Dosage: 0.01 ?/O OPHTHALMIC SOLUTION?1 DROP INTO BOTH EYES 2 TIMES DAILY.

REACTIONS (2)
  - Pulmonary thrombosis [Unknown]
  - Sarcoidosis [Unknown]

NARRATIVE: CASE EVENT DATE: 2019
